FAERS Safety Report 7297837-0 (Version None)
Quarter: 2011Q1

REPORT INFORMATION
  Report Type: 
  Country: None (occurrence: None)
  Receive Date: 20110217
  Receipt Date: 20110201
  Transmission Date: 20110831
  Serious: Yes (Disabling, Other)
  Sender: FDA-Public Use
  Company Number: US-BAYER-200916707NA

PATIENT
  Sex: Female
  Weight: 54 kg

DRUGS (38)
  1. OPTIMARK [Suspect]
     Indication: NUCLEAR MAGNETIC RESONANCE IMAGING
  2. XANAX [Concomitant]
  3. EPOGEN [Concomitant]
     Indication: ANAEMIA
     Dates: start: 20030901
  4. HYDROCODONE BITARTRATE AND ACETAMINOPHEN [Concomitant]
  5. RIFAMPIN [Concomitant]
  6. MAGNEVIST [Suspect]
     Indication: NUCLEAR MAGNETIC RESONANCE IMAGING
     Route: 042
     Dates: start: 20061122, end: 20061122
  7. MAGNEVIST [Suspect]
     Dates: start: 20061204, end: 20061204
  8. PROTONIX [Concomitant]
  9. ZOFRAN [Concomitant]
  10. ALBUTEROL [Concomitant]
  11. PREDNISONE TAB [Concomitant]
  12. COUMADIN [Concomitant]
  13. ZEMPLAR [Concomitant]
  14. DAPTOMYCIN [Concomitant]
  15. GADOLINIUM IN UNSPECIFIED DRUG [Suspect]
  16. VANCOMYCIN [Concomitant]
  17. MAGNEVIST [Suspect]
     Indication: OSTEOMYELITIS
     Dates: start: 20061124, end: 20061124
  18. RENAGEL [Concomitant]
  19. DYNACIRC [Concomitant]
  20. OMNISCAN [Suspect]
     Indication: NUCLEAR MAGNETIC RESONANCE IMAGING
  21. PROTONIX [Concomitant]
     Indication: GASTROOESOPHAGEAL REFLUX DISEASE
  22. METOPROLOL TARTRATE [Concomitant]
  23. BENICAR [Concomitant]
  24. COLACE [Concomitant]
  25. TOPROL-XL [Concomitant]
  26. MULTIHANCE [Suspect]
     Indication: OSTEOMYELITIS
  27. ADVAIR DISKUS 100/50 [Concomitant]
     Indication: ASTHMA
  28. ZYRTEC [Concomitant]
     Indication: MULTIPLE ALLERGIES
  29. FERRLECIT [Concomitant]
     Dates: start: 20030901
  30. HYDROCODONE BITARTRATE AND ACETAMINOPHEN [Concomitant]
  31. LOPRESSOR [Concomitant]
  32. DARVOCET-N 100 [Concomitant]
  33. TENEX [Concomitant]
  34. PROHANCE [Suspect]
     Indication: NUCLEAR MAGNETIC RESONANCE IMAGING
  35. SENSIPAR [Concomitant]
  36. FOSRENOL [Concomitant]
     Dates: start: 20060309
  37. MIRALAX [Concomitant]
  38. CEFEPIME [Concomitant]

REACTIONS (19)
  - GENERAL PHYSICAL HEALTH DETERIORATION [None]
  - EMOTIONAL DISTRESS [None]
  - SKIN NECROSIS [None]
  - GAIT DISTURBANCE [None]
  - SKIN INDURATION [None]
  - HYPERAESTHESIA [None]
  - NEPHROGENIC SYSTEMIC FIBROSIS [None]
  - SKIN HYPERPIGMENTATION [None]
  - DERMATITIS [None]
  - SKIN HYPERTROPHY [None]
  - JOINT RANGE OF MOTION DECREASED [None]
  - TENDON DISORDER [None]
  - FIBROSIS [None]
  - MOBILITY DECREASED [None]
  - OEDEMA PERIPHERAL [None]
  - MUSCLE TIGHTNESS [None]
  - PAIN [None]
  - SCAR [None]
  - ANXIETY [None]
